FAERS Safety Report 19233020 (Version 3)
Quarter: 2021Q2

REPORT INFORMATION
  Report Type: Report from Study
  Country: US (occurrence: US)
  Receive Date: 20210507
  Receipt Date: 20210607
  Transmission Date: 20210717
  Serious: Yes (Other)
  Sender: FDA-Public Use
  Company Number: US-BAYER-2021-137189

PATIENT
  Age: 50 Year
  Sex: Male

DRUGS (3)
  1. STIVARGA [Suspect]
     Active Substance: REGORAFENIB
     Indication: COLORECTAL CANCER
     Dosage: 160MG DAILY
     Route: 048
     Dates: start: 20210503
  2. STIVARGA [Suspect]
     Active Substance: REGORAFENIB
     Indication: COLORECTAL CANCER
     Dosage: 80 MG DAILY
     Route: 048
     Dates: start: 20210419, end: 20210425
  3. STIVARGA [Suspect]
     Active Substance: REGORAFENIB
     Indication: COLORECTAL CANCER
     Dosage: 120 MG DAILY
     Route: 048
     Dates: start: 20210426, end: 20210501

REACTIONS (11)
  - Diarrhoea [Unknown]
  - Abdominal pain upper [Recovering/Resolving]
  - Skin irritation [None]
  - Headache [Unknown]
  - Abdominal pain [Unknown]
  - Fatigue [Recovering/Resolving]
  - Nail disorder [Not Recovered/Not Resolved]
  - Flatulence [Recovering/Resolving]
  - Feeling abnormal [None]
  - Neuropathy peripheral [Unknown]
  - Off label use [None]

NARRATIVE: CASE EVENT DATE: 20210419
